FAERS Safety Report 23048781 (Version 1)
Quarter: 2023Q4

REPORT INFORMATION
  Report Type: Spontaneous
  Country: US (occurrence: US)
  Receive Date: 20231010
  Receipt Date: 20231010
  Transmission Date: 20240110
  Serious: Yes (Life-Threatening, Hospitalization, Other)
  Sender: FDA-Public Use
  Company Number: US-drreddys-SPO/USA/23/0178849

PATIENT
  Age: 69 Year
  Sex: Female
  Weight: 49.9 kg

DRUGS (4)
  1. AMLODIPINE MALEATE [Suspect]
     Active Substance: AMLODIPINE MALEATE
     Indication: Product used for unknown indication
     Dosage: UNKNOWN AMOUNTS
     Route: 048
  2. CARVEDILOL [Suspect]
     Active Substance: CARVEDILOL
     Indication: Product used for unknown indication
     Route: 048
  3. APIXABAN [Suspect]
     Active Substance: APIXABAN
     Indication: Atrial fibrillation
     Route: 048
  4. ATORVASTATIN [Concomitant]
     Active Substance: ATORVASTATIN
     Indication: Product used for unknown indication
     Route: 048

REACTIONS (5)
  - Subarachnoid haemorrhage [Recovered/Resolved]
  - Extradural haematoma [Recovered/Resolved]
  - Brain herniation [Recovered/Resolved]
  - Subdural haematoma [Recovered/Resolved]
  - Intentional overdose [Recovered/Resolved]
